FAERS Safety Report 16473980 (Version 2)
Quarter: 2020Q1

REPORT INFORMATION
  Report Type: Spontaneous
  Country: MK (occurrence: MK)
  Receive Date: 20190625
  Receipt Date: 20200128
  Transmission Date: 20200409
  Serious: Yes (Death, Other)
  Sender: FDA-Public Use
  Company Number: MK-PANACEA BIOTEC LIMITED-000001

PATIENT
  Age: 7 Year

DRUGS (6)
  1. ANTITHYMOCYTE IMMUNOGLOBULIN (RABBIT) [Concomitant]
     Active Substance: LAPINE T-LYMPHOCYTE IMMUNE GLOBULIN
  2. CICLOSPORIN (CYCLOSPORIN) [Suspect]
     Active Substance: CYCLOSPORINE
     Indication: ALLOGENIC STEM CELL TRANSPLANTATION
  3. METHOTREXATE. [Concomitant]
     Active Substance: METHOTREXATE
     Indication: ALLOGENIC STEM CELL TRANSPLANTATION
     Dosage: ON DAY +1, +3, +6 AND +11
     Route: 065
  4. MYCOPHENOLATE MOFETIL. [Suspect]
     Active Substance: MYCOPHENOLATE MOFETIL
     Indication: ALLOGENIC STEM CELL TRANSPLANTATION
  5. TACROLIMUS. [Suspect]
     Active Substance: TACROLIMUS
     Indication: ALLOGENIC STEM CELL TRANSPLANTATION
  6. METHYLPREDNISOLONE. [Concomitant]
     Active Substance: METHYLPREDNISOLONE
     Indication: ALLOGENIC STEM CELL TRANSPLANTATION
     Route: 065

REACTIONS (5)
  - Graft versus host disease in skin [Fatal]
  - Posterior reversible encephalopathy syndrome [Unknown]
  - Graft versus host disease in gastrointestinal tract [Fatal]
  - Product use in unapproved indication [Unknown]
  - Posterior reversible encephalopathy syndrome [Recovered/Resolved]
